FAERS Safety Report 22259684 (Version 1)
Quarter: 2023Q2

REPORT INFORMATION
  Report Type: Spontaneous
  Country: US (occurrence: US)
  Receive Date: 20230427
  Receipt Date: 20230427
  Transmission Date: 20230721
  Serious: No
  Sender: FDA-Public Use
  Company Number: US-TAKEDA-2023TUS042304

PATIENT
  Age: 37 Year
  Sex: Male
  Weight: 66 kg

DRUGS (5)
  1. ENTYVIO [Suspect]
     Active Substance: VEDOLIZUMAB
     Indication: Crohn^s disease
     Dosage: 300 MILLIGRAM
     Route: 065
  2. ZYRTEC [Concomitant]
     Active Substance: CETIRIZINE HYDROCHLORIDE
     Dosage: UNK
  3. PRILOSEC [Concomitant]
     Active Substance: OMEPRAZOLE MAGNESIUM
     Dosage: UNK
  4. SINGULAIR [Concomitant]
     Active Substance: MONTELUKAST SODIUM
     Dosage: UNK
  5. KLONOPIN [Concomitant]
     Active Substance: CLONAZEPAM
     Dosage: UNK

REACTIONS (8)
  - Hypoaesthesia [Unknown]
  - Insomnia [Unknown]
  - Dizziness [Unknown]
  - Dyspnoea [Unknown]
  - Heart rate increased [Unknown]
  - Blood pressure increased [Unknown]
  - Influenza [Unknown]
  - Nausea [Unknown]

NARRATIVE: CASE EVENT DATE: 20230425
